FAERS Safety Report 6792955-5 (Version None)
Quarter: 2010Q2

REPORT INFORMATION
  Report Type: 
  Country: None (occurrence: None)
  Receive Date: 20100624
  Receipt Date: 20081031
  Transmission Date: 20101027
  Serious: No
  Sender: FDA-Public Use
  Company Number: US-PFIZER INC-2008093222

PATIENT
  Sex: Female
  Weight: 77.11 kg

DRUGS (6)
  1. XALATAN [Suspect]
     Indication: GLAUCOMA
     Route: 047
     Dates: start: 20080101
  2. ANASTROZOLE [Concomitant]
     Indication: BREAST CANCER
  3. CALAN [Concomitant]
  4. PERCOCET [Concomitant]
  5. ALPRAZOLAM [Concomitant]
  6. TYLENOL [Concomitant]

REACTIONS (4)
  - ABNORMAL DREAMS [None]
  - ARTHRALGIA [None]
  - CIRCUMSTANCE OR INFORMATION CAPABLE OF LEADING TO MEDICATION ERROR [None]
  - NERVOUSNESS [None]
